FAERS Safety Report 8251589-6 (Version None)
Quarter: 2012Q2

REPORT INFORMATION
  Report Type: 
  Country: None (occurrence: None)
  Receive Date: 20120402
  Receipt Date: 20120220
  Transmission Date: 20120825
  Serious: No
  Sender: FDA-Public Use
  Company Number: US-ABBOTT-12P-163-0906599-00

PATIENT
  Sex: Male

DRUGS (3)
  1. ANDROGEL [Suspect]
     Indication: PRODUCT USED FOR UNKNOWN INDICATION
     Route: 061
  2. ANDROGEL [Suspect]
     Dosage: 1%
     Route: 061
  3. ANDROGEL [Suspect]
     Dosage: 1%
     Route: 061

REACTIONS (2)
  - SKIN REACTION [None]
  - ALOPECIA [None]
